FAERS Safety Report 5266659-4 (Version None)
Quarter: 2007Q1

REPORT INFORMATION
  Report Type: 
  Country: None (occurrence: None)
  Receive Date: 20070312
  Receipt Date: 20070223
  Transmission Date: 20070707
  Serious: Yes (Death, Other)
  Sender: FDA-Public Use
  Company Number: 2007JP000813

PATIENT
  Age: 45 Year
  Sex: Female

DRUGS (6)
  1. PROGRAF [Suspect]
     Indication: BONE MARROW TRANSPLANT
  2. FUNGUARD(MICAFUNDIN) INJECTION [Suspect]
     Indication: CANDIDIASIS
     Dosage: IV DRIP
     Route: 041
  3. VORICONAZOLE (VORICONAZOLE) [Concomitant]
  4. PREDNISOLONE [Concomitant]
  5. CYCLOSPORIN A FORMULATION UNKNOWN [Concomitant]
  6. AMPHOTERICIN B, LIPOSOME (AMPHOTERICIN  B, LIPOSOME) FORMULATION UNKNO [Concomitant]

REACTIONS (7)
  - CANDIDIASIS [None]
  - CEREBRAL HAEMORRHAGE [None]
  - ENCEPHALOPATHY [None]
  - ENDOCARDITIS [None]
  - LIVER ABSCESS [None]
  - NO THERAPEUTIC RESPONSE [None]
  - RENAL ABSCESS [None]
